FAERS Safety Report 13393966 (Version 1)
Quarter: 2017Q1

REPORT INFORMATION
  Report Type: Spontaneous
  Country: US (occurrence: US)
  Receive Date: 20170331
  Receipt Date: 20170331
  Transmission Date: 20170429
  Serious: Yes (Other)
  Sender: FDA-Public Use
  Company Number: US-BAUSCH-BL-2017-008109

PATIENT
  Age: 88 Year
  Sex: Male

DRUGS (1)
  1. XIFAXAN [Suspect]
     Active Substance: RIFAXIMIN
     Indication: HEPATIC FAILURE
     Route: 065
     Dates: end: 20170318

REACTIONS (2)
  - Adverse event [Not Recovered/Not Resolved]
  - Hospice care [Unknown]

NARRATIVE: CASE EVENT DATE: 201703
